FAERS Safety Report 9460439 (Version 2)
Quarter: 2013Q3

REPORT INFORMATION
  Report Type: Spontaneous
  Country: US (occurrence: US)
  Receive Date: 20130815
  Receipt Date: 20130822
  Transmission Date: 20140515
  Serious: Yes (Hospitalization, Other)
  Sender: FDA-Public Use
  Company Number: US-TEVA-425276USA

PATIENT
  Age: 12 Month
  Sex: Female
  Weight: 9 kg

DRUGS (1)
  1. METHOTREXATE [Suspect]
     Indication: LEUKAEMIA
     Route: 037
     Dates: start: 20130509

REACTIONS (2)
  - Neurotoxicity [Recovered/Resolved]
  - Convulsion [Recovered/Resolved]
